FAERS Safety Report 9877285 (Version 1)
Quarter: 2014Q1

REPORT INFORMATION
  Report Type: Spontaneous
  Country: US (occurrence: US)
  Receive Date: 20140206
  Receipt Date: 20140206
  Transmission Date: 20141002
  Serious: No
  Sender: FDA-Public Use
  Company Number: US-JNJFOC-20140114019

PATIENT
  Age: 68 Year
  Sex: Female
  Weight: 77.11 kg

DRUGS (9)
  1. DURAGESIC [Suspect]
     Indication: PAIN
     Route: 062
     Dates: start: 201401
  2. CELEXA [Concomitant]
     Route: 065
  3. AMITRIPTYLINE [Concomitant]
     Route: 065
  4. KLONOPIN [Concomitant]
     Route: 065
  5. SALAGEN [Concomitant]
     Route: 065
  6. PREDNISONE [Concomitant]
     Route: 065
  7. TRAMADOL [Concomitant]
     Route: 065
  8. HYDROCODONE [Concomitant]
     Route: 065
  9. FOSAMAX [Concomitant]
     Route: 065

REACTIONS (3)
  - Poor quality drug administered [Not Recovered/Not Resolved]
  - Product adhesion issue [Unknown]
  - Product quality issue [Unknown]
